FAERS Safety Report 5285208-8 (Version None)
Quarter: 2007Q1

REPORT INFORMATION
  Report Type: 
  Country: None (occurrence: None)
  Receive Date: 20061229
  Receipt Date: 20060918
  Transmission Date: 20070707
  Serious: Yes (Other)
  Sender: FDA-Public Use
  Company Number: 2006UW18239

PATIENT
  Age: 58 Year
  Sex: Female
  Weight: 56.699 kg

DRUGS (4)
  1. CRESTOR [Suspect]
     Indication: BLOOD CHOLESTEROL INCREASED
     Dosage: 10 MG PO
     Route: 048
     Dates: start: 20060822
  2. PLAVIX [Concomitant]
  3. ASPIRIN [Concomitant]
  4. DIGITEK [Concomitant]

REACTIONS (4)
  - DIZZINESS [None]
  - MALAISE [None]
  - MUSCULAR WEAKNESS [None]
  - NAUSEA [None]
